FAERS Safety Report 23653205 (Version 4)
Quarter: 2024Q3

REPORT INFORMATION
  Report Type: Spontaneous
  Country: US (occurrence: US)
  Receive Date: 20240320
  Receipt Date: 20240827
  Transmission Date: 20241017
  Serious: No
  Sender: PFIZER
  Company Number: US-PFIZER INC-202300327476

PATIENT
  Age: 54 Year
  Sex: Male
  Weight: 71.667 kg

DRUGS (5)
  1. OXBRYTA [Suspect]
     Active Substance: VOXELOTOR
     Indication: Sickle cell anaemia
     Dosage: 1500 MG, DAILY
     Route: 048
  2. OXBRYTA [Suspect]
     Active Substance: VOXELOTOR
     Dosage: 1000 MG, 1X/DAY
     Route: 048
     Dates: start: 202310
  3. OXBRYTA [Suspect]
     Active Substance: VOXELOTOR
     Dosage: 500MG TABLET, 3 TABLETS ONCE DAILY
     Route: 048
     Dates: start: 202310
  4. OXBRYTA [Suspect]
     Active Substance: VOXELOTOR
     Dosage: TAKING 2 TABLETS DAILY
  5. FOLIC ACID [Concomitant]
     Active Substance: FOLIC ACID
     Dosage: UNK

REACTIONS (2)
  - Diarrhoea [Recovering/Resolving]
  - Off label use [Unknown]
